FAERS Safety Report 7967058-4 (Version None)
Quarter: 2011Q4

REPORT INFORMATION
  Report Type: 
  Country: None (occurrence: None)
  Receive Date: 20111209
  Receipt Date: 20111201
  Transmission Date: 20120403
  Serious: Yes (Death)
  Sender: FDA-Public Use
  Company Number: BE-CELGENEUS-013-50794-11120262

PATIENT
  Sex: Female
  Weight: 70 kg

DRUGS (1)
  1. VIDAZA [Suspect]
     Route: 065
     Dates: end: 20111103

REACTIONS (1)
  - DISEASE PROGRESSION [None]
